FAERS Safety Report 10877758 (Version 2)
Quarter: 2015Q2

REPORT INFORMATION
  Report Type: Spontaneous
  Country: US (occurrence: None)
  Receive Date: 20150224
  Receipt Date: 20150428
  Transmission Date: 20150821
  Serious: Yes (Disabling, Other)
  Sender: FDA-Public Use
  Company Number: 2015-10701

PATIENT
  Age: 79 Year
  Sex: Female

DRUGS (4)
  1. EYLEA [Suspect]
     Active Substance: AFLIBERCEPT
     Indication: AGE-RELATED MACULAR DEGENERATION
     Dosage: 2 MG MILLIGRAM(S), EVERY 4-6 WEEKS, INTRAOCULAR
     Route: 031
     Dates: start: 201403, end: 20150126
  2. BENAZEPRIL [Concomitant]
     Active Substance: BENAZEPRIL\BENAZEPRIL HYDROCHLORIDE
  3. PRESERVISION (ASCORBIC ACID, BETACAROTINE, CUPRIC OXIDE, TOCOPHERYL ACETATE, ZINC OXIDE) [Concomitant]
  4. ZOCOR [Concomitant]
     Active Substance: SIMVASTATIN

REACTIONS (4)
  - Visual acuity reduced [None]
  - Blindness transient [None]
  - Endophthalmitis [None]
  - Vitrectomy [None]

NARRATIVE: CASE EVENT DATE: 20150128
